FAERS Safety Report 21623517 (Version 1)
Quarter: 2022Q4

REPORT INFORMATION
  Report Type: Spontaneous
  Country: US (occurrence: US)
  Receive Date: 20221121
  Receipt Date: 20221121
  Transmission Date: 20230113
  Serious: No
  Sender: FDA-Public Use
  Company Number: US-ORGANON-O2211USA000856

PATIENT
  Sex: Female

DRUGS (10)
  1. FOLLISTIM AQ [Suspect]
     Active Substance: FOLLITROPIN
     Indication: Infertility female
     Dosage: 300 UNT/0.36ML 1=1/INJECT 150 UNITS UNDER THE SKIN (SUBCUTANEOUS INJECTION) EVERY OTHER DAY AS DIREC
     Route: 058
     Dates: start: 20220811
  2. BALZIVA [Concomitant]
     Active Substance: ETHINYL ESTRADIOL\NORETHINDRONE
     Dosage: UNK
  3. CLOMIPHENE [Concomitant]
     Active Substance: CLOMIPHENE
     Dosage: 50 MILLIGRAM
  4. GANIRELIX [Concomitant]
     Active Substance: GANIRELIX
     Dosage: 250 MICROGRAM
  5. HYDROCODONE BITARTRATE AND ACETAMINOPHEN [Concomitant]
     Active Substance: ACETAMINOPHEN\HYDROCODONE BITARTRATE
     Dosage: UNK, 5-325MG
  6. INDOMETHACIN [Concomitant]
     Active Substance: INDOMETHACIN
     Dosage: 50 MILLIGRAM
  7. LETROZOLE [Concomitant]
     Active Substance: LETROZOLE
     Dosage: 2.5 MILLIGRAM
  8. LEUPROLIDE ACETATE [Concomitant]
     Active Substance: LEUPROLIDE ACETATE
     Dosage: UNK, 1MG/0.2ML MDV 1=2.8
  9. LEVOTHYROXINE [Concomitant]
     Active Substance: LEVOTHYROXINE
     Dosage: 112 MICROGRAM
  10. PROGESTERONE [Concomitant]
     Active Substance: PROGESTERONE
     Dosage: 200 MILLIGRAM

REACTIONS (2)
  - Pain [Unknown]
  - Pruritus [Unknown]
